FAERS Safety Report 19194865 (Version 2)
Quarter: 2021Q2

REPORT INFORMATION
  Report Type: Spontaneous
  Country: US (occurrence: US)
  Receive Date: 20210429
  Receipt Date: 20210607
  Transmission Date: 20210717
  Serious: No
  Sender: FDA-Public Use
  Company Number: US-ALXN-A202104986

PATIENT
  Age: 50 Year
  Sex: Female
  Weight: 63.39 kg

DRUGS (10)
  1. MAXALT [Concomitant]
     Active Substance: RIZATRIPTAN BENZOATE
     Indication: MIGRAINE
     Dosage: 10 MG, UNK (TAKE ONE TABLET FOR ONSET OF MIGRAINE AND REPEAT IN 2 HRS, IF NEEDED).
     Route: 065
  2. SYNTHROID [Concomitant]
     Active Substance: LEVOTHYROXINE SODIUM
     Indication: HYPOTHYROIDISM
     Dosage: 75 MG, QD (ONE TABLET BY MOUTH, EVERY MORNING)
     Route: 048
  3. ELAVIL [Concomitant]
     Active Substance: AMITRIPTYLINE HYDROCHLORIDE
     Indication: PRODUCT USED FOR UNKNOWN INDICATION
     Dosage: 25 MG, QHS (TAKE ONE TABLET BY MOUTH)
     Route: 048
  4. AZELASTINE. [Concomitant]
     Active Substance: AZELASTINE HYDROCHLORIDE
     Indication: PRODUCT USED FOR UNKNOWN INDICATION
     Dosage: 137 MCG (APPLY TWO SPRAYS)
     Route: 045
  5. FLUOCINOLONE ACETONIDE. [Concomitant]
     Active Substance: FLUOCINOLONE ACETONIDE
     Indication: PRODUCT USED FOR UNKNOWN INDICATION
     Dosage: UNK, BID (INSTALL FIVE DROPS IN TO AFFECTED EAR )
     Route: 065
  6. KLONOPIN [Concomitant]
     Active Substance: CLONAZEPAM
     Indication: PRODUCT USED FOR UNKNOWN INDICATION
     Dosage: 0.5 MG, QHS (1 MG TABLET)
     Route: 048
  7. ALLEGRA [Concomitant]
     Active Substance: FEXOFENADINE HYDROCHLORIDE
     Indication: PRODUCT USED FOR UNKNOWN INDICATION
     Dosage: 60 MG, QD (BY MOUTH)
     Route: 048
  8. FLEXERIL [Concomitant]
     Active Substance: CYCLOBENZAPRINE HYDROCHLORIDE
     Indication: PRODUCT USED FOR UNKNOWN INDICATION
     Dosage: 10 MG, QD (10 MG TABLET)
     Route: 048
  9. STRENSIQ [Suspect]
     Active Substance: ASFOTASE ALFA
     Indication: HYPOPHOSPHATASIA
     Dosage: 120 MG, TIW
     Route: 058
     Dates: start: 20210322
  10. FLUOCINONIDE. [Concomitant]
     Active Substance: FLUOCINONIDE
     Indication: PRODUCT USED FOR UNKNOWN INDICATION
     Dosage: 1 DF, QD
     Route: 061

REACTIONS (9)
  - Musculoskeletal discomfort [Unknown]
  - Arthralgia [Unknown]
  - Kyphosis [Unknown]
  - Depression [Unknown]
  - Condition aggravated [Unknown]
  - Anxiety [Unknown]
  - Injection site reaction [Unknown]
  - Epicondylitis [Unknown]
  - Osteopenia [Unknown]

NARRATIVE: CASE EVENT DATE: 20210419
